FAERS Safety Report 6189086-4 (Version None)
Quarter: 2009Q2

REPORT INFORMATION
  Report Type: 
  Country: None (occurrence: None)
  Receive Date: 20090512
  Receipt Date: 20090429
  Transmission Date: 20091009
  Serious: No
  Sender: FDA-Public Use
  Company Number: 2009-195806-NL

PATIENT
  Age: 27 Year
  Sex: Female

DRUGS (1)
  1. ETONOGESTREL [Suspect]
     Indication: CONTRACEPTION
     Dosage: DF, SUSDERMAL
     Route: 059
     Dates: start: 20060601, end: 20090426

REACTIONS (1)
  - CERVIX CARCINOMA [None]
